FAERS Safety Report 19251807 (Version 1)
Quarter: 2021Q2

REPORT INFORMATION
  Report Type: Spontaneous
  Country: KR (occurrence: KR)
  Receive Date: 20210512
  Receipt Date: 20210512
  Transmission Date: 20210717
  Serious: Yes (Hospitalization)
  Sender: FDA-Public Use
  Company Number: KR-GILEAD-2021-0530258

PATIENT
  Sex: Male
  Weight: 80 kg

DRUGS (5)
  1. VEKLURY [Suspect]
     Active Substance: REMDESIVIR
     Indication: COVID-19
     Dosage: UNK; LOADING DOSE
     Route: 042
     Dates: start: 20210503, end: 20210503
  2. TENORMIN [Concomitant]
     Active Substance: ATENOLOL
     Indication: ANGINA PECTORIS
  3. VEKLURY [Suspect]
     Active Substance: REMDESIVIR
     Dosage: UNK
     Route: 042
     Dates: start: 20210504, end: 20210505
  4. TENORMIN [Concomitant]
     Active Substance: ATENOLOL
     Indication: HYPERTENSION
  5. OXYGEN. [Concomitant]
     Active Substance: OXYGEN

REACTIONS (1)
  - Bradycardia [Recovered/Resolved]

NARRATIVE: CASE EVENT DATE: 20210505
